FAERS Safety Report 20661966 (Version 1)
Quarter: 2022Q2

REPORT INFORMATION
  Report Type: Report from Study
  Country: FR (occurrence: FR)
  Receive Date: 20220401
  Receipt Date: 20220401
  Transmission Date: 20220720
  Serious: Yes (Hospitalization)
  Sender: FDA-Public Use
  Company Number: FR-SERVIER-S22003154

PATIENT

DRUGS (15)
  1. PEGASPARGASE [Suspect]
     Active Substance: PEGASPARGASE
     Indication: Acute lymphocytic leukaemia
     Dosage: 1325 IU, D4
     Route: 042
     Dates: start: 20220131, end: 20220131
  2. DEXAMETHASONE [Suspect]
     Active Substance: DEXAMETHASONE
     Indication: Acute lymphocytic leukaemia
     Dosage: 5 MG, D1 TO D15
     Route: 048
     Dates: start: 20220128, end: 20220211
  3. METHOTREXATE [Suspect]
     Active Substance: METHOTREXATE
     Indication: Acute lymphocytic leukaemia
     Dosage: 10 MG, D4
     Route: 037
     Dates: start: 20220131
  4. VINCRISTINE [Suspect]
     Active Substance: VINCRISTINE
     Indication: Acute lymphocytic leukaemia
     Dosage: 0.8 MG, D8 TO D15
     Route: 042
     Dates: start: 20220204, end: 20220211
  5. DAUNORUBICIN [Suspect]
     Active Substance: DAUNORUBICIN
     Indication: Acute lymphocytic leukaemia
     Dosage: 13.3 MG, D8, D15
     Route: 042
     Dates: start: 20220204, end: 20220211
  6. BACTRIM [Suspect]
     Active Substance: SULFAMETHOXAZOLE\TRIMETHOPRIM
     Indication: Product used for unknown indication
     Dosage: 7.5 ML, M, W, F
     Route: 048
  7. TN UNSPECIFIED [Concomitant]
     Indication: Product used for unknown indication
     Dosage: 10 ML
     Route: 048
  8. TN UNSPECIFIED [Concomitant]
     Indication: Product used for unknown indication
     Dosage: 80000 IU
     Route: 048
  9. TN UNSPECIFIED [Concomitant]
     Indication: Pain
     Dosage: UNK
     Route: 048
  10. TN UNSPECIFIED [Concomitant]
     Indication: Anxiety
     Dosage: 5 MG
     Route: 048
  11. TN UNSPECIFIED [Concomitant]
     Indication: Agitation
  12. TN UNSPECIFIED [Concomitant]
     Indication: Constipation
     Dosage: 4 MG
     Route: 048
  13. EMLA [Concomitant]
     Active Substance: LIDOCAINE\PRILOCAINE
     Indication: Product used for unknown indication
     Route: 065
  14. TN UNSPECIFIED [Concomitant]
     Indication: Nausea
     Dosage: 8 ML
     Route: 048
  15. TN UNSPECIFIED [Concomitant]
     Indication: Vomiting

REACTIONS (3)
  - Febrile bone marrow aplasia [Recovered/Resolved]
  - Urinary tract infection [Recovered/Resolved]
  - COVID-19 [Recovered/Resolved]

NARRATIVE: CASE EVENT DATE: 20220217
